FAERS Safety Report 8467516 (Version 4)
Quarter: 2015Q4

REPORT INFORMATION
  Report Type: Spontaneous
  Country: AU (occurrence: AU)
  Receive Date: 20120320
  Receipt Date: 20151130
  Transmission Date: 20160305
  Serious: Yes (Other)
  Sender: FDA-Public Use
  Company Number: PHHY2012AU022881

PATIENT
  Age: 46 Year
  Sex: Female

DRUGS (9)
  1. GLIVEC [Suspect]
     Active Substance: IMATINIB MESYLATE
     Indication: GASTROINTESTINAL STROMAL TUMOUR
     Dosage: 400 MG, QD
     Route: 048
     Dates: start: 200706
  2. SUNITINIB [Suspect]
     Active Substance: SUNITINIB
     Indication: GASTROINTESTINAL STROMAL TUMOUR
     Route: 065
     Dates: start: 201206
  3. GLIVEC [Suspect]
     Active Substance: IMATINIB MESYLATE
     Dosage: 400 MG, BID
     Route: 048
     Dates: start: 200808
  4. GLIVEC [Suspect]
     Active Substance: IMATINIB MESYLATE
     Dosage: 1000 MG, UNK
     Route: 048
     Dates: start: 20110803
  5. REGORAFENIB [Suspect]
     Active Substance: REGORAFENIB
     Indication: GASTROINTESTINAL STROMAL TUMOUR
     Route: 065
     Dates: start: 201312
  6. GLIVEC [Suspect]
     Active Substance: IMATINIB MESYLATE
     Dosage: 600 MG, QD
     Route: 048
     Dates: start: 200803
  7. GLIVEC [Suspect]
     Active Substance: IMATINIB MESYLATE
     Dosage: 400 MG, BID
     Route: 048
     Dates: start: 20151022
  8. GLIVEC [Suspect]
     Active Substance: IMATINIB MESYLATE
     Dosage: 800 MG, UNK
     Route: 048
  9. GLIVEC [Suspect]
     Active Substance: IMATINIB MESYLATE
     Dosage: 400 MG, BID
     Route: 048
     Dates: end: 201206

REACTIONS (11)
  - Gastrointestinal perforation [Unknown]
  - Generalised oedema [Recovered/Resolved]
  - Photosensitivity reaction [Unknown]
  - Malignant neoplasm progression [Unknown]
  - Metastases to liver [Unknown]
  - Albinism [Not Recovered/Not Resolved]
  - Gastrointestinal stromal tumour [Unknown]
  - Ascites [Recovered/Resolved]
  - Rectal haemorrhage [Unknown]
  - Metastases to bone [Unknown]
  - Drug intolerance [Unknown]

NARRATIVE: CASE EVENT DATE: 200803
